FAERS Safety Report 20776338 (Version 2)
Quarter: 2022Q2

REPORT INFORMATION
  Report Type: Spontaneous
  Country: US (occurrence: US)
  Receive Date: 20220502
  Receipt Date: 20220520
  Transmission Date: 20220721
  Serious: No
  Sender: FDA-Public Use
  Company Number: US-SANOFI-00962810

PATIENT
  Age: 61 Year
  Sex: Female

DRUGS (1)
  1. LANTUS SOLOSTAR [Suspect]
     Active Substance: INSULIN GLARGINE
     Indication: Type 2 diabetes mellitus
     Dosage: 30 U, QD (30-32)
     Route: 058
     Dates: start: 20220201, end: 20220422

REACTIONS (1)
  - Product storage error [Unknown]
